FAERS Safety Report 6647813-3 (Version None)
Quarter: 2010Q1

REPORT INFORMATION
  Report Type: 
  Country: None (occurrence: None)
  Receive Date: 20100318
  Receipt Date: 20100315
  Transmission Date: 20100710
  Serious: Yes (Hospitalization)
  Sender: FDA-Public Use
  Company Number: 2009SP043029

PATIENT
  Age: 77 Year
  Sex: Female

DRUGS (10)
  1. MIRTAZAPINE [Suspect]
     Dosage: 15 MG;QD;PO
     Route: 048
     Dates: end: 20091107
  2. ESIDRIX [Suspect]
     Dosage: 25 MG;BID;PO
     Route: 048
     Dates: start: 20090801, end: 20091107
  3. AUGMENTIN '125' [Suspect]
     Indication: ANTIBIOTIC THERAPY
     Dosage: 1000 MG;TID;PO
     Route: 048
     Dates: start: 20090801, end: 20091107
  4. PREDNISONE [Suspect]
     Indication: POLYARTERITIS NODOSA
     Dosage: 50 MG;QD;PO
     Route: 048
     Dates: start: 20090625, end: 20091107
  5. SINEMET [Suspect]
     Indication: PARKINSON'S DISEASE
     Dosage: 2 DF;TID;PO
     Route: 048
     Dates: end: 20091107
  6. ALPRAZOLAM [Suspect]
     Indication: DRUG USE FOR UNKNOWN INDICATION
     Dosage: 0.625 MG;QD;PO
     Route: 048
     Dates: end: 20091107
  7. TEMERIT /01339101/ (NEBIVOLOL) [Suspect]
     Indication: DRUG USE FOR UNKNOWN INDICATION
     Dosage: 5 MG;QD;PO
     Route: 048
     Dates: end: 20091107
  8. OMEPRAZOLE [Suspect]
     Indication: DRUG USE FOR UNKNOWN INDICATION
     Dosage: 40 MG;QD;PO
     Route: 048
     Dates: end: 20090801
  9. AMLODIPINE [Suspect]
     Indication: DRUG USE FOR UNKNOWN INDICATION
     Dosage: 5 MG;QD;PO
     Route: 048
     Dates: end: 20091107
  10. CAPTOPRIL [Suspect]
     Dosage: 50 MG;BID;PO
     Route: 048
     Dates: start: 20090801, end: 20091107

REACTIONS (29)
  - ABDOMINAL DISTENSION [None]
  - ASTHENIA [None]
  - BLOOD POTASSIUM DECREASED [None]
  - BLOOD SODIUM DECREASED [None]
  - CHROMATURIA [None]
  - CONFUSIONAL STATE [None]
  - CUSHINGOID [None]
  - CYTOLYTIC HEPATITIS [None]
  - DECREASED APPETITE [None]
  - DISORIENTATION [None]
  - DYSKINESIA [None]
  - FAECES DISCOLOURED [None]
  - FALL [None]
  - GENERAL PHYSICAL HEALTH DETERIORATION [None]
  - HAEMOTHORAX [None]
  - HEPATIC HAEMATOMA [None]
  - HEPATIC HAEMORRHAGE [None]
  - HEPATOMEGALY [None]
  - INJURY [None]
  - LIVER DISORDER [None]
  - LOSS OF CONSCIOUSNESS [None]
  - MALAISE [None]
  - NAUSEA [None]
  - OEDEMA PERIPHERAL [None]
  - PALLOR [None]
  - PARKINSONISM [None]
  - POLYARTERITIS NODOSA [None]
  - PSYCHOMOTOR RETARDATION [None]
  - WHITE BLOOD CELL COUNT INCREASED [None]
